FAERS Safety Report 24376350 (Version 1)
Quarter: 2024Q3

REPORT INFORMATION
  Report Type: Spontaneous
  Country: CN (occurrence: CN)
  Receive Date: 20240930
  Receipt Date: 20240930
  Transmission Date: 20241017
  Serious: Yes (Other)
  Sender: SANOFI AVENTIS
  Company Number: CN-SANOFI-02223612

PATIENT
  Age: 60 Year
  Sex: Male

DRUGS (1)
  1. ELOXATIN [Suspect]
     Active Substance: OXALIPLATIN
     Dosage: UNK
     Dates: start: 20240913, end: 20240913

REACTIONS (5)
  - Laryngeal oedema [Recovering/Resolving]
  - Palpitations [Recovering/Resolving]
  - Pruritus [Recovered/Resolved]
  - Chest discomfort [Recovering/Resolving]
  - Dysarthria [Recovering/Resolving]

NARRATIVE: CASE EVENT DATE: 20240913
